FAERS Safety Report 10022855 (Version 2)
Quarter: 2014Q2

REPORT INFORMATION
  Report Type: Spontaneous
  Country: US (occurrence: US)
  Receive Date: 20140319
  Receipt Date: 20140519
  Transmission Date: 20141212
  Serious: Yes (Hospitalization, Other)
  Sender: FDA-Public Use
  Company Number: US-BMSGILMSD-2014-0096946

PATIENT
  Sex: Male

DRUGS (4)
  1. ATRIPLA [Suspect]
     Indication: HIV INFECTION
     Dosage: UNK
     Route: 048
     Dates: start: 201212
  2. PREZISTA [Concomitant]
     Indication: HIV INFECTION
     Route: 065
  3. EPZICOM [Concomitant]
     Indication: HIV INFECTION
     Route: 065
  4. PREDNISONE [Concomitant]
     Dosage: UNK
     Route: 065

REACTIONS (7)
  - Haemolytic anaemia [Recovered/Resolved]
  - Lymphadenopathy [Recovered/Resolved]
  - Night sweats [Recovered/Resolved]
  - Joint swelling [Recovered/Resolved]
  - Splenomegaly [Not Recovered/Not Resolved]
  - Pancytopenia [Recovered/Resolved]
  - Arthralgia [Recovered/Resolved]
